FAERS Safety Report 4292081-3 (Version None)
Quarter: 2004Q1

REPORT INFORMATION
  Report Type: 
  Country: None (occurrence: None)
  Receive Date: 20040211
  Receipt Date: 20030730
  Transmission Date: 20041129
  Serious: Yes (Hospitalization)
  Sender: FDA-Public Use
  Company Number: WAES 0307USA03455

PATIENT
  Age: 61 Year
  Sex: Female
  Weight: 121 kg

DRUGS (16)
  1. TYLENOL (CAPLET) [Concomitant]
  2. PARAFON FORTE [Concomitant]
  3. PROVENTIL [Concomitant]
     Route: 055
  4. ASPIRIN [Concomitant]
  5. LIORESAL [Concomitant]
  6. VALIUM [Concomitant]
  7. DEMEROL [Concomitant]
  8. DITROPAN [Concomitant]
  9. INDERAL [Concomitant]
  10. VIOXX [Suspect]
     Indication: BURSITIS
     Route: 048
     Dates: start: 20011001, end: 20011030
  11. VIOXX [Suspect]
     Route: 048
     Dates: start: 20011101, end: 20011109
  12. VIOXX [Suspect]
     Route: 048
     Dates: start: 20011110, end: 20011122
  13. VIOXX [Suspect]
     Indication: BACK PAIN
     Route: 048
     Dates: start: 20011001, end: 20011030
  14. VIOXX [Suspect]
     Route: 048
     Dates: start: 20011101, end: 20011109
  15. VIOXX [Suspect]
     Route: 048
     Dates: start: 20011110, end: 20011122
  16. SEREVENT [Concomitant]
     Route: 055

REACTIONS (28)
  - ANGINA PECTORIS [None]
  - ASTHENIA [None]
  - BLADDER SPASM [None]
  - BRONCHIAL INFECTION [None]
  - CEREBRAL ISCHAEMIA [None]
  - CEREBROVASCULAR ACCIDENT [None]
  - CERVICOBRACHIAL SYNDROME [None]
  - CHOLELITHIASIS [None]
  - CONFUSIONAL STATE [None]
  - DYSURIA [None]
  - EMBOLIC STROKE [None]
  - EMOTIONAL DISTRESS [None]
  - FALL [None]
  - HYPERTENSION [None]
  - HYPOAESTHESIA [None]
  - INTERVERTEBRAL DISC DEGENERATION [None]
  - LUMBAR RADICULOPATHY [None]
  - MIGRAINE [None]
  - MYOFASCIAL PAIN SYNDROME [None]
  - NERVE COMPRESSION [None]
  - OEDEMA PERIPHERAL [None]
  - POLLAKIURIA [None]
  - ROTATOR CUFF SYNDROME [None]
  - SPEECH DISORDER [None]
  - SPONDYLOLISTHESIS ACQUIRED [None]
  - TREATMENT NONCOMPLIANCE [None]
  - URINARY TRACT INFECTION [None]
  - VENTRICULAR HYPERTROPHY [None]
